FAERS Safety Report 25483396 (Version 1)
Quarter: 2025Q2

REPORT INFORMATION
  Report Type: Spontaneous
  Country: US (occurrence: US)
  Receive Date: 20250626
  Receipt Date: 20250626
  Transmission Date: 20250717
  Serious: No
  Sender: RECKITT BENCKISER
  Company Number: US-INDIVIOR US-INDV-161331-2025

PATIENT
  Sex: Male

DRUGS (2)
  1. OPVEE [Suspect]
     Active Substance: NALMEFENE HYDROCHLORIDE
     Indication: Product used for unknown indication
     Route: 045
  2. METHADONE [Suspect]
     Active Substance: METHADONE HYDROCHLORIDE
     Indication: Product used for unknown indication
     Route: 065

REACTIONS (1)
  - Drug withdrawal syndrome [Unknown]
